FAERS Safety Report 4860806-1 (Version None)
Quarter: 2005Q4

REPORT INFORMATION
  Report Type: 
  Country: None (occurrence: None)
  Receive Date: 20051220
  Receipt Date: 20051213
  Transmission Date: 20060501
  Serious: Yes (Death, Other)
  Sender: FDA-Public Use
  Company Number: US-JNJFOC-20041101496

PATIENT
  Sex: Female
  Weight: 4.08 kg

DRUGS (4)
  1. CONCENTRATED TYLENOL INFANTS' PLUS COLD [Suspect]
  2. CONCENTRATED TYLENOL INFANTS' PLUS COLD [Suspect]
     Dosage: 7.5 ML OVER 2 DAYS, ^MANY TIMES A DAY^
  3. PEDIA RELIEF [Suspect]
     Route: 048
  4. PEDIA RELIEF [Suspect]
     Indication: NASAL CONGESTION
     Dosage: 15 ML OVER 2 DAYS, PO
     Route: 048

REACTIONS (3)
  - INJURY ASPHYXIATION [None]
  - OVERDOSE [None]
  - THERAPEUTIC AGENT TOXICITY [None]
